FAERS Safety Report 12556050 (Version 1)
Quarter: 2016Q3

REPORT INFORMATION
  Report Type: Report from Study
  Country: CN (occurrence: CN)
  Receive Date: 20160714
  Receipt Date: 20160714
  Transmission Date: 20161109
  Serious: Yes (Other)
  Sender: FDA-Public Use
  Company Number: CN-MYLANLABS-2016M1029126

PATIENT

DRUGS (2)
  1. FLUOROURACIL. [Suspect]
     Active Substance: FLUOROURACIL
     Indication: CHEMOTHERAPY
     Dosage: 300 MG/M2 DAILY ON DAY 1-5 AND DAY 8-12 EVERY 21 DAYS
     Route: 041
  2. CISPLATIN. [Suspect]
     Active Substance: CISPLATIN
     Indication: CHEMOTHERAPY
     Dosage: 5 MG/M2 DAILY ON DAY 1-4 AND DAY 8-12 EVERY 21 DAYS
     Route: 041

REACTIONS (1)
  - Mucosal inflammation [Unknown]
